FAERS Safety Report 6013405-2 (Version None)
Quarter: 2008Q4

REPORT INFORMATION
  Report Type: 
  Country: None (occurrence: None)
  Receive Date: 20081218
  Receipt Date: 20081218
  Transmission Date: 20090506
  Serious: Yes (Other)
  Sender: FDA-Public Use
  Company Number: None

PATIENT
  Age: 44 Year
  Sex: Female
  Weight: 86.1834 kg

DRUGS (1)
  1. UTA  (METHENAMINE-HYOSC-METH BLUE-SOD PHOS-PHENYL) [Suspect]
     Indication: CYSTITIS INTERSTITIAL
     Dosage: 1 TABLET TWICE A DAY
     Dates: start: 20080815, end: 20080903

REACTIONS (6)
  - DIZZINESS [None]
  - EYE PAIN [None]
  - OCULAR HYPERAEMIA [None]
  - PHOTOPHOBIA [None]
  - VISION BLURRED [None]
  - VISUAL IMPAIRMENT [None]
